FAERS Safety Report 10698615 (Version 4)
Quarter: 2016Q3

REPORT INFORMATION
  Report Type: Spontaneous
  Country: FR (occurrence: FR)
  Receive Date: 20150108
  Receipt Date: 20160811
  Transmission Date: 20161109
  Serious: Yes (Disabling, Other)
  Sender: FDA-Public Use
  Company Number: FR-BAXTER-2015BAX000130

PATIENT
  Age: 15 Year
  Sex: Male
  Weight: 75 kg

DRUGS (12)
  1. ETOPOPHOS [Suspect]
     Active Substance: ETOPOSIDE PHOSPHATE
     Indication: T-CELL TYPE ACUTE LEUKAEMIA
     Route: 042
     Dates: start: 20141025, end: 20141028
  2. METHOTREXATE BIODIM [Suspect]
     Active Substance: METHOTREXATE
     Indication: T-CELL TYPE ACUTE LEUKAEMIA
     Route: 037
     Dates: start: 20140920, end: 20141103
  3. ERWINASE [Suspect]
     Active Substance: ASPARAGINASE ERWINIA CHRYSANTHEMI
     Indication: T-CELL TYPE ACUTE LEUKAEMIA
     Route: 042
     Dates: start: 20140926, end: 20141017
  4. ATRIANCE [Suspect]
     Active Substance: NELARABINE
     Indication: T-CELL TYPE ACUTE LEUKAEMIA
     Route: 042
     Dates: start: 20141024, end: 20141028
  5. ARACYTINE [Suspect]
     Active Substance: CYTARABINE
     Dosage: AT DAY 1, TRIPLE INTRATHECAL ADMINISTRATION
     Route: 037
     Dates: start: 20141130
  6. VINCRISTINE HOSPIRA [Suspect]
     Active Substance: VINCRISTINE
     Indication: T-CELL TYPE ACUTE LEUKAEMIA
     Route: 042
     Dates: start: 20140923, end: 20141016
  7. METHOTREXATE BIODIM [Suspect]
     Active Substance: METHOTREXATE
     Dosage: AT DAY 1, TRIPLE INTRATHECAL ADMINISTRATION
     Route: 037
     Dates: start: 20141130
  8. ARACYTINE [Suspect]
     Active Substance: CYTARABINE
     Indication: T-CELL TYPE ACUTE LEUKAEMIA
     Route: 037
     Dates: start: 20140926, end: 20141103
  9. METHYLPREDNISOLONE MYLAN [Suspect]
     Active Substance: METHYLPREDNISOLONE
     Indication: T-CELL TYPE ACUTE LEUKAEMIA
     Route: 037
     Dates: start: 20140926, end: 20141103
  10. GLIVEC [Suspect]
     Active Substance: IMATINIB MESYLATE
     Indication: PRODUCT USED FOR UNKNOWN INDICATION
     Route: 048
     Dates: start: 20141105
  11. METHYLPREDNISOLONE MYLAN [Suspect]
     Active Substance: METHYLPREDNISOLONE
     Dosage: AT DAY 1, TRIPLE INTRATHECAL ADMINISTRATION
     Route: 037
     Dates: start: 20141130
  12. ENDOXAN 1000 MG, POUDRE POUR SOLUTION INJECTABLE [Suspect]
     Active Substance: CYCLOPHOSPHAMIDE
     Indication: T-CELL TYPE ACUTE LEUKAEMIA
     Route: 042
     Dates: start: 20140925, end: 20141026

REACTIONS (2)
  - Polyneuropathy [Recovered/Resolved with Sequelae]
  - Haemochromatosis [Unknown]

NARRATIVE: CASE EVENT DATE: 20141107
